FAERS Safety Report 5408962-0 (Version None)
Quarter: 2007Q3

REPORT INFORMATION
  Report Type: 
  Country: None (occurrence: None)
  Receive Date: 20070713
  Receipt Date: 20070503
  Transmission Date: 20080115
  Serious: Yes (Hospitalization, Other)
  Sender: FDA-Public Use
  Company Number: US-JNJFOC-20060801069

PATIENT
  Age: 29 Year
  Sex: Female
  Weight: 70.7611 kg

DRUGS (1)
  1. ORTHO EVRA [Suspect]
     Indication: DRUG USE FOR UNKNOWN INDICATION
     Dates: start: 20021201, end: 20030501

REACTIONS (3)
  - ABDOMINAL PAIN [None]
  - BILIARY DYSKINESIA [None]
  - PULMONARY EMBOLISM [None]
